FAERS Safety Report 17524077 (Version 1)
Quarter: 2020Q1

REPORT INFORMATION
  Report Type: Spontaneous
  Country: FR (occurrence: FR)
  Receive Date: 20200310
  Receipt Date: 20200310
  Transmission Date: 20200409
  Serious: Yes (Life-Threatening)
  Sender: FDA-Public Use
  Company Number: FR-ABBVIE-20K-056-3308924-00

PATIENT
  Sex: Female

DRUGS (3)
  1. HUMIRA [Suspect]
     Active Substance: ADALIMUMAB
     Indication: CROHN^S DISEASE
     Route: 064
     Dates: start: 20191225, end: 20200108
  2. KARDEGIC [Suspect]
     Active Substance: ASPIRIN DL-LYSINE
     Indication: PRE-ECLAMPSIA
     Route: 064
     Dates: start: 201907
  3. PREDNISOLONE. [Suspect]
     Active Substance: PREDNISOLONE
     Indication: CROHN^S DISEASE
     Route: 064
     Dates: start: 201911, end: 20200106

REACTIONS (2)
  - Premature baby [Recovered/Resolved with Sequelae]
  - Foetal growth restriction [Recovered/Resolved with Sequelae]

NARRATIVE: CASE EVENT DATE: 20200120
